FAERS Safety Report 24380810 (Version 1)
Quarter: 2024Q3

REPORT INFORMATION
  Report Type: Other
  Country: GB (occurrence: GB)
  Receive Date: 20240930
  Receipt Date: 20240930
  Transmission Date: 20241017
  Serious: Yes (Other)
  Sender: GENUS LIFESCIENCES
  Company Number: GB-Genus_Lifesciences-USA-POI0580202400147

PATIENT
  Sex: Female

DRUGS (6)
  1. ACETAMINOPHEN\CODEINE PHOSPHATE [Suspect]
     Active Substance: ACETAMINOPHEN\CODEINE PHOSPHATE
     Indication: Rhinitis
     Dosage: UNKNOWN
     Dates: start: 2024, end: 2024
  2. ACETAMINOPHEN\CODEINE PHOSPHATE [Suspect]
     Active Substance: ACETAMINOPHEN\CODEINE PHOSPHATE
     Indication: Productive cough
  3. GUAIFENESIN [Suspect]
     Active Substance: GUAIFENESIN
     Indication: Rhinitis
     Dosage: UNKNOWN
     Dates: start: 2024, end: 2024
  4. GUAIFENESIN [Suspect]
     Active Substance: GUAIFENESIN
     Indication: Productive cough
  5. PHENYLEPHRINE HYDROCHLORIDE [Suspect]
     Active Substance: PHENYLEPHRINE HYDROCHLORIDE
     Indication: Rhinitis
     Dosage: UNKNOWN
     Dates: start: 2024, end: 2024
  6. PHENYLEPHRINE HYDROCHLORIDE [Suspect]
     Active Substance: PHENYLEPHRINE HYDROCHLORIDE
     Indication: Productive cough

REACTIONS (1)
  - Angle closure glaucoma [Recovered/Resolved]

NARRATIVE: CASE EVENT DATE: 20240101
